FAERS Safety Report 8250571-2 (Version None)
Quarter: 2012Q2

REPORT INFORMATION
  Report Type: 
  Country: None (occurrence: None)
  Receive Date: 20120402
  Receipt Date: 20120402
  Transmission Date: 20120825
  Serious: Yes (Other)
  Sender: FDA-Public Use
  Company Number: None

PATIENT
  Age: 56 Year
  Sex: Male
  Weight: 140.61 kg

DRUGS (1)
  1. RECLAST [Suspect]
     Indication: OSTEITIS DEFORMANS
     Dosage: 30 MINUTES
     Route: 041
     Dates: start: 20120324, end: 20120324

REACTIONS (6)
  - MUSCULOSKELETAL PAIN [None]
  - BACK PAIN [None]
  - TREMOR [None]
  - HEADACHE [None]
  - COLD SWEAT [None]
  - FEELING ABNORMAL [None]
